FAERS Safety Report 4354531-3 (Version None)
Quarter: 2004Q2

REPORT INFORMATION
  Report Type: 
  Country: None (occurrence: None)
  Receive Date: 20040505
  Receipt Date: 20040420
  Transmission Date: 20050107
  Serious: Yes (Hospitalization)
  Sender: FDA-Public Use
  Company Number: 2004-BP-03025BP

PATIENT
  Age: 75 Year
  Sex: Female

DRUGS (2)
  1. CATAPRES-TTS-3 [Suspect]
     Indication: HYPERTENSION
     Dosage: 0.3 MG (7.5 MG), TO
     Dates: start: 20030101, end: 20040101
  2. CATAPRES-TTS-3 [Suspect]
     Indication: HYPERTENSION
     Dosage: 0.3 MG (7.5 MG), TO
     Dates: start: 20040101, end: 20040101

REACTIONS (3)
  - DELUSIONAL DISORDER, PERSECUTORY TYPE [None]
  - DEPRESSION [None]
  - HYPERTENSION [None]
